FAERS Safety Report 17365631 (Version 1)
Quarter: 2020Q1

REPORT INFORMATION
  Report Type: Spontaneous
  Country: ES (occurrence: ES)
  Receive Date: 20200204
  Receipt Date: 20200204
  Transmission Date: 20200409
  Serious: Yes (Death, Other)
  Sender: FDA-Public Use
  Company Number: ES-SA-2020SA025783

PATIENT
  Age: 73 Year
  Sex: Female

DRUGS (2)
  1. AFLIBERCEPT [Suspect]
     Active Substance: AFLIBERCEPT
     Dosage: UNK
     Dates: start: 201510, end: 201605
  2. AFLIBERCEPT [Suspect]
     Active Substance: AFLIBERCEPT
     Dosage: REDUCED DOSE

REACTIONS (6)
  - Hypertension [Unknown]
  - Febrile neutropenia [Unknown]
  - Death [Fatal]
  - Skin ulcer [Unknown]
  - Disease progression [Unknown]
  - Neutropenia [Unknown]

NARRATIVE: CASE EVENT DATE: 20190919
